FAERS Safety Report 6274951-X (Version None)
Quarter: 2009Q3

REPORT INFORMATION
  Report Type: 
  Country: None (occurrence: None)
  Receive Date: 20090721
  Receipt Date: 20090717
  Transmission Date: 20100115
  Serious: Yes (Death)
  Sender: FDA-Public Use
  Company Number: JP-ASTRAZENECA-2009SE03570

PATIENT
  Age: 31103 Day
  Sex: Female
  Weight: 42 kg

DRUGS (2)
  1. XYLOCAINE [Suspect]
     Indication: LOCAL ANAESTHESIA
     Route: 048
     Dates: start: 20090526, end: 20090526
  2. XYLOCAINE [Suspect]
     Indication: LOCAL ANAESTHESIA
     Dosage: SPRAYED THREE TIMES.
     Route: 048
     Dates: start: 20090526, end: 20090526

REACTIONS (1)
  - SHOCK [None]
